FAERS Safety Report 7777441-8 (Version None)
Quarter: 2011Q3

REPORT INFORMATION
  Report Type: 
  Country: None (occurrence: None)
  Receive Date: 20110922
  Receipt Date: 20110906
  Transmission Date: 20111222
  Serious: Yes (Hospitalization)
  Sender: FDA-Public Use
  Company Number: DSA_45175_2011

PATIENT
  Sex: Female
  Weight: 61.2356 kg

DRUGS (5)
  1. APLENZIN [Suspect]
     Indication: DEPRESSION
     Dosage: (348 MG QD ORAL), (522 MG QD ORAL)
     Route: 048
     Dates: start: 20100409, end: 20101124
  2. APLENZIN [Suspect]
     Indication: DEPRESSION
     Dosage: (348 MG QD ORAL), (522 MG QD ORAL)
     Route: 048
     Dates: start: 20101221, end: 20110116
  3. B-12 VITAMIN [Concomitant]
  4. DEPLIN [Concomitant]
  5. FOLIC ACID [Concomitant]

REACTIONS (11)
  - CONVULSION [None]
  - LOSS OF CONSCIOUSNESS [None]
  - BREAST MASS [None]
  - BREAST CYST [None]
  - HYPOAESTHESIA [None]
  - JOINT SWELLING [None]
  - POSTMENOPAUSAL HAEMORRHAGE [None]
  - TREMOR [None]
  - JOINT RANGE OF MOTION DECREASED [None]
  - SYNCOPE [None]
  - PARAESTHESIA [None]
